FAERS Safety Report 12799094 (Version 1)
Quarter: 2016Q3

REPORT INFORMATION
  Report Type: Spontaneous
  Country: FI (occurrence: FI)
  Receive Date: 20160930
  Receipt Date: 20160930
  Transmission Date: 20161109
  Serious: Yes (Other)
  Sender: FDA-Public Use
  Company Number: FI-SA-2016SA092960

PATIENT
  Age: 76 Year
  Sex: Male

DRUGS (18)
  1. VIAGRA [Concomitant]
     Active Substance: SILDENAFIL CITRATE
     Dosage: 1 DOSE ONCE PER DAY WHEN NEEDED
     Dates: start: 20131101
  2. DIFORMIN [Concomitant]
     Active Substance: METFORMIN HYDROCHLORIDE
     Dosage: CONTINUOUS MEDICATION, NOS
     Dates: start: 20131101
  3. LANTUS [Concomitant]
     Active Substance: INSULIN GLARGINE
     Indication: TYPE 1 DIABETES MELLITUS
     Dosage: 100 U/ML
     Dates: end: 20160320
  4. ASPIRIN. [Concomitant]
     Active Substance: ASPIRIN
     Indication: CARDIAC DISORDER
     Dosage: 1 DOSE ONCE PER DAY, CONTINUOUS MEDICATION
     Dates: start: 20141230
  5. AMLODIPIN [Concomitant]
     Active Substance: AMLODIPINE BESYLATE
     Dosage: CONTINUOUS MEDICATION, NOS
     Dates: start: 20131101
  6. SIMVASTATIN. [Concomitant]
     Active Substance: SIMVASTATIN
     Dosage: CONTINUOUS MEDICATION, NOS
     Dates: start: 20131101
  7. AQUALAN [Concomitant]
     Dosage: EMOLLIENT GEL?ONCE PER DAY WHEN NEEDED
     Dates: start: 20141230
  8. AQUALAN [Concomitant]
     Dosage: EMOLLIENT GEL?ONCE PER DAY WHEN NEEDED
     Dates: start: 20120905
  9. SOLOSTAR [Concomitant]
     Active Substance: DEVICE
     Dates: start: 20160321
  10. FLEXPEN [Concomitant]
     Active Substance: UNSPECIFIED INGREDIENT
     Indication: DIABETES MELLITUS
     Dates: start: 20131101
  11. LINATIL [Concomitant]
     Active Substance: ENALAPRIL MALEATE
     Dosage: CONTINUOUS MEDICATION, NOS
     Dates: start: 20131101
  12. FINASTERIDE. [Concomitant]
     Active Substance: FINASTERIDE
     Dosage: 1 DOSE ONCE PER DAY, CONTINUOUS MEDICATION
     Dates: start: 20131101
  13. VOLTAREN [Concomitant]
     Active Substance: DICLOFENAC SODIUM
     Dates: start: 20111116
  14. SIRDALUD [Concomitant]
     Active Substance: TIZANIDINE
     Dosage: 1 DOSE 1-3 TIMES PER DAY WHEN NEEDED
     Dates: start: 20111116
  15. PARA-TABS [Concomitant]
     Active Substance: ACETAMINOPHEN
     Dosage: 1-2 DOSES 1-3 TIMES PER DAY WHEN NEEDED
     Dates: start: 20091207
  16. LIPOLAN [Concomitant]
     Dosage: ONCE PER DAY WHEN NEEDED
     Dates: start: 20120905
  17. TOUJEO [Suspect]
     Active Substance: INSULIN GLARGINE
     Indication: TYPE 1 DIABETES MELLITUS
     Dosage: DOSE:48-52 UNITS IN THE EVENINGS
     Route: 065
     Dates: start: 20160321
  18. NOVORAPID [Concomitant]
     Active Substance: INSULIN ASPART
     Indication: DIABETES MELLITUS
     Dosage: (100 U/ML SOLUTION FOR INJECTION)
     Dates: start: 20131101

REACTIONS (5)
  - Hypokinesia [Not Recovered/Not Resolved]
  - Pain in extremity [Not Recovered/Not Resolved]
  - Myalgia [Not Recovered/Not Resolved]
  - Back pain [Not Recovered/Not Resolved]
  - Polymyalgia rheumatica [Not Recovered/Not Resolved]

NARRATIVE: CASE EVENT DATE: 2016
